FAERS Safety Report 22288823 (Version 3)
Quarter: 2023Q2

REPORT INFORMATION
  Report Type: Spontaneous
  Country: US (occurrence: US)
  Receive Date: 20230505
  Receipt Date: 20230601
  Transmission Date: 20230722
  Serious: No
  Sender: FDA-Public Use
  Company Number: US-PFIZER INC-202300176543

PATIENT
  Age: 66 Year
  Sex: Female
  Weight: 58.06 kg

DRUGS (1)
  1. PAXLOVID [Suspect]
     Active Substance: NIRMATRELVIR\RITONAVIR
     Indication: COVID-19 treatment
     Dosage: 3 DF [PF-07321332 300 MG]/[RITONAVIR 100 MG], 2X/DAY

REACTIONS (1)
  - Product label confusion [Unknown]
